FAERS Safety Report 7211569-6 (Version None)
Quarter: 2010Q4

REPORT INFORMATION
  Report Type: 
  Country: None (occurrence: None)
  Receive Date: 20101228
  Receipt Date: 20101220
  Transmission Date: 20110411
  Serious: Yes (Hospitalization)
  Sender: FDA-Public Use
  Company Number: 018062

PATIENT
  Sex: Female
  Weight: 88 kg

DRUGS (7)
  1. KEPPRA [Suspect]
     Dosage: (250 MG BID), (1000 MG), (750 MG BID, UP TITRATION)
     Dates: start: 20100801, end: 20100101
  2. KEPPRA [Suspect]
     Dosage: (250 MG BID), (1000 MG), (750 MG BID, UP TITRATION)
     Dates: start: 20100801, end: 20100801
  3. KEPPRA [Suspect]
     Dosage: (250 MG BID), (1000 MG), (750 MG BID, UP TITRATION)
     Dates: start: 20100820, end: 20100801
  4. CORTISONE (CORTISONE) [Suspect]
     Dosage: (HIGH DOSE TREATMENT)
  5. DEXAMETHASONE [Concomitant]
  6. PANTOPRAZOLE [Concomitant]
  7. CALCIMAGON /00108001/ [Concomitant]

REACTIONS (14)
  - AGGRESSION [None]
  - ANXIETY [None]
  - BALANCE DISORDER [None]
  - BRAIN OEDEMA [None]
  - CONFUSIONAL STATE [None]
  - EPILEPSY [None]
  - HALLUCINATION [None]
  - HOT FLUSH [None]
  - MONOPLEGIA [None]
  - MOOD SWINGS [None]
  - PRURITUS [None]
  - PSYCHOTIC DISORDER [None]
  - SENSATION OF HEAVINESS [None]
  - VISION BLURRED [None]
